FAERS Safety Report 18428599 (Version 2)
Quarter: 2020Q4

REPORT INFORMATION
  Report Type: Spontaneous
  Country: US (occurrence: US)
  Receive Date: 20201026
  Receipt Date: 20201222
  Transmission Date: 20210114
  Serious: No
  Sender: FDA-Public Use
  Company Number: US-ASTRAZENECA-2020SF26803

PATIENT
  Age: 674 Month
  Sex: Female
  Weight: 81.6 kg

DRUGS (1)
  1. FASENRA [Suspect]
     Active Substance: BENRALIZUMAB
     Indication: ASTHMA
     Route: 058
     Dates: start: 202007

REACTIONS (3)
  - Eye pain [Unknown]
  - Arthralgia [Not Recovered/Not Resolved]
  - Swelling of eyelid [Not Recovered/Not Resolved]

NARRATIVE: CASE EVENT DATE: 202008
